FAERS Safety Report 10238122 (Version 3)
Quarter: 2015Q1

REPORT INFORMATION
  Report Type: Spontaneous
  Country: JP (occurrence: JP)
  Receive Date: 20140616
  Receipt Date: 20150206
  Transmission Date: 20150720
  Serious: Yes (Hospitalization, Other)
  Sender: FDA-Public Use
  Company Number: PHHY2014JP073874

PATIENT
  Age: 74 Year
  Sex: Female

DRUGS (2)
  1. PREDNISONE. [Concomitant]
     Active Substance: PREDNISONE
     Indication: PLASMA CELL MYELOMA
     Route: 065
     Dates: start: 200808, end: 201304
  2. ZOMETA [Suspect]
     Active Substance: ZOLEDRONIC ACID
     Indication: PLASMA CELL MYELOMA
     Dosage: 4 MG, PER ADMINISTRATION
     Route: 065
     Dates: start: 200808, end: 201304

REACTIONS (14)
  - Purulent discharge [Unknown]
  - Pain in jaw [Unknown]
  - Exposed bone in jaw [Unknown]
  - Ocular fistula [Unknown]
  - Swelling face [Recovering/Resolving]
  - Bone disorder [Unknown]
  - Bone lesion [Unknown]
  - Swelling [Unknown]
  - Gingival bleeding [Unknown]
  - Gingival erythema [Unknown]
  - Osteomyelitis [Unknown]
  - Tenderness [Unknown]
  - Gingivitis [Unknown]
  - Osteonecrosis of jaw [Recovering/Resolving]

NARRATIVE: CASE EVENT DATE: 201304
